FAERS Safety Report 9062902 (Version 1)
Quarter: 2013Q1

REPORT INFORMATION
  Report Type: Report from Study
  Country: US (occurrence: US)
  Receive Date: 20130131
  Receipt Date: 20130131
  Transmission Date: 20140127
  Serious: Yes (Other)
  Sender: FDA-Public Use
  Company Number: US-ABBOTT-12P-163-1008410-00

PATIENT
  Sex: Female
  Weight: 21.79 kg

DRUGS (4)
  1. HUMIRA [Suspect]
     Indication: COLITIS ULCERATIVE
     Route: 058
     Dates: start: 201207, end: 201207
  2. HUMIRA [Suspect]
     Route: 058
     Dates: start: 201207, end: 20121102
  3. IRON (NON-ABBOTT) [Concomitant]
     Indication: ANAEMIA
  4. VYVANCE (NON-ABBOTT) [Concomitant]
     Indication: ATTENTION DEFICIT/HYPERACTIVITY DISORDER

REACTIONS (1)
  - Colitis ulcerative [Not Recovered/Not Resolved]
